FAERS Safety Report 20450381 (Version 1)
Quarter: 2022Q1

REPORT INFORMATION
  Report Type: Report from Study
  Country: JP (occurrence: JP)
  Receive Date: 20220209
  Receipt Date: 20220209
  Transmission Date: 20220423
  Serious: Yes (Other)
  Sender: FDA-Public Use
  Company Number: JP-OTSUKA-2018_012747

PATIENT
  Age: 74 Year
  Sex: Male
  Weight: 65 kg

DRUGS (12)
  1. TOLVAPTAN [Suspect]
     Active Substance: TOLVAPTAN
     Indication: Congenital cystic kidney disease
     Dosage: 45 MG, QD, MORNING
     Route: 048
     Dates: start: 20150115, end: 20150122
  2. TOLVAPTAN [Suspect]
     Active Substance: TOLVAPTAN
     Dosage: 15 MG, QD, EVENING
     Route: 048
     Dates: start: 20150115, end: 20150122
  3. TOLVAPTAN [Suspect]
     Active Substance: TOLVAPTAN
     Dosage: 15 MG, QD, MORNING
     Route: 048
     Dates: start: 20150127, end: 20150208
  4. TOLVAPTAN [Suspect]
     Active Substance: TOLVAPTAN
     Dosage: 22.5 MG, QD, MORNING
     Route: 048
     Dates: start: 20150209, end: 20171105
  5. TOLVAPTAN [Suspect]
     Active Substance: TOLVAPTAN
     Dosage: 30 MG, QD, MORNING
     Route: 048
     Dates: start: 20171106, end: 20180204
  6. TOLVAPTAN [Suspect]
     Active Substance: TOLVAPTAN
     Dosage: 22.5 MG, QD, MORNING
     Route: 048
     Dates: start: 20180205
  7. BROTIZOLAM [Concomitant]
     Active Substance: BROTIZOLAM
     Indication: Product used for unknown indication
     Dosage: 0.5 MG, QD
     Route: 048
  8. LIPITOR [Concomitant]
     Active Substance: ATORVASTATIN CALCIUM
     Indication: Product used for unknown indication
     Dosage: 5 MG, QD
     Route: 048
     Dates: end: 20180205
  9. YAKUBAN [Concomitant]
     Active Substance: FLURBIPROFEN
     Indication: Product used for unknown indication
     Dosage: 20 MG, QD
     Route: 062
  10. FEBUXOSTAT [Concomitant]
     Active Substance: FEBUXOSTAT
     Indication: Product used for unknown indication
     Dosage: 20 MG, QD
     Route: 048
  11. ALESION [Concomitant]
     Active Substance: EPINASTINE HYDROCHLORIDE
     Indication: Product used for unknown indication
     Dosage: 20 MG, QD
     Route: 048
     Dates: end: 20180205
  12. LIVALO [Concomitant]
     Active Substance: PITAVASTATIN CALCIUM
     Indication: Dyslipidaemia
     Dosage: 1 MG, QD
     Route: 048
     Dates: start: 20180205

REACTIONS (2)
  - Bradycardia [Recovering/Resolving]
  - Inappropriate schedule of product administration [Unknown]

NARRATIVE: CASE EVENT DATE: 20150122
